FAERS Safety Report 4788141-0 (Version None)
Quarter: 2005Q4

REPORT INFORMATION
  Report Type: 
  Country: None (occurrence: None)
  Receive Date: 20051004
  Receipt Date: 20051004
  Transmission Date: 20060501
  Serious: Yes (Hospitalization, Other)
  Sender: FDA-Public Use
  Company Number: None

PATIENT
  Sex: Female
  Weight: 79.54 kg

DRUGS (6)
  1. CISPLATIN [Suspect]
     Indication: SMALL CELL LUNG CANCER STAGE UNSPECIFIED
     Dosage: SEE IMAGE
     Route: 042
     Dates: start: 20050613, end: 20050711
  2. CISPLATIN [Suspect]
     Indication: SMALL CELL LUNG CANCER STAGE UNSPECIFIED
     Dosage: SEE IMAGE
     Route: 042
     Dates: start: 20050711
  3. ETOPOSIDE [Suspect]
     Dosage: SEE IMAGE
     Route: 042
     Dates: start: 20050613, end: 20050711
  4. ETOPOSIDE [Suspect]
     Dosage: SEE IMAGE
     Route: 042
     Dates: start: 20050711
  5. ETOPOSIDE [Suspect]
     Dosage: SEE IMAGE
     Route: 048
     Dates: start: 20050711
  6. RADIATION [Suspect]
     Dosage: SEE IMAGE
     Dates: start: 20050711

REACTIONS (20)
  - ABDOMINAL PAIN [None]
  - ANAEMIA [None]
  - CHEST PAIN [None]
  - CLOSTRIDIAL INFECTION [None]
  - DEHYDRATION [None]
  - DIARRHOEA [None]
  - DYSPHAGIA [None]
  - FEEDING TUBE COMPLICATION [None]
  - NIGHT SWEATS [None]
  - ODYNOPHAGIA [None]
  - OESOPHAGITIS [None]
  - ORAL INTAKE REDUCED [None]
  - PHARYNGOLARYNGEAL PAIN [None]
  - POST PROCEDURAL NAUSEA [None]
  - POST PROCEDURAL VOMITING [None]
  - SHOULDER PAIN [None]
  - SINUSITIS [None]
  - THROAT IRRITATION [None]
  - URINARY TRACT INFECTION [None]
  - VERTIGO [None]
